FAERS Safety Report 24996531 (Version 1)
Quarter: 2025Q1

REPORT INFORMATION
  Report Type: Spontaneous
  Country: GB (occurrence: GB)
  Receive Date: 20250221
  Receipt Date: 20250221
  Transmission Date: 20250408
  Serious: Yes (Other)
  Sender: MERCK SHARP & DOHME LLC
  Company Number: GB-Eisai-EC-2025-183960

PATIENT
  Age: 74 Year
  Sex: Male

DRUGS (3)
  1. PEMBROLIZUMAB [Suspect]
     Active Substance: PEMBROLIZUMAB
     Indication: Clear cell renal cell carcinoma
     Route: 042
  2. LENVATINIB [Suspect]
     Active Substance: LENVATINIB
     Indication: Clear cell renal cell carcinoma
     Route: 048
  3. LENVATINIB [Suspect]
     Active Substance: LENVATINIB
     Indication: Clear cell renal cell carcinoma
     Route: 048

REACTIONS (5)
  - Diabetes mellitus [Recovered/Resolved]
  - Hypertension [Recovered/Resolved]
  - Hypothyroidism [Unknown]
  - Nephrotic syndrome [Recovered/Resolved]
  - Paraneoplastic syndrome [Recovered/Resolved]
